FAERS Safety Report 4855262-3 (Version None)
Quarter: 2005Q4

REPORT INFORMATION
  Report Type: 
  Country: None (occurrence: None)
  Receive Date: 20051214
  Receipt Date: 20051128
  Transmission Date: 20060501
  Serious: No
  Sender: FDA-Public Use
  Company Number: 2005AL004745

PATIENT
  Age: 21 Year
  Sex: Female
  Weight: 58.9676 kg

DRUGS (5)
  1. LORAZEPAM [Suspect]
     Indication: CONVULSION
     Dosage: 2 MG; QD; PO
     Route: 048
     Dates: start: 20051104
  2. DEPAKOTE [Suspect]
     Indication: CONVULSION
     Dosage: 250 MG; TID; PO
     Route: 048
     Dates: start: 20050101
  3. PROTONIX [Concomitant]
  4. ZANTAC [Concomitant]
  5. CARNITOR [Concomitant]

REACTIONS (3)
  - DRUG INEFFECTIVE [None]
  - PHARMACEUTICAL PRODUCT COMPLAINT [None]
  - POOR QUALITY DRUG ADMINISTERED [None]
